FAERS Safety Report 22246541 (Version 4)
Quarter: 2023Q2

REPORT INFORMATION
  Report Type: Spontaneous
  Country: MX (occurrence: MX)
  Receive Date: 20230424
  Receipt Date: 20230622
  Transmission Date: 20230722
  Serious: Yes (Hospitalization)
  Sender: FDA-Public Use
  Company Number: MX-BAYER-2023A056790

PATIENT
  Age: 49 Year
  Sex: Male

DRUGS (2)
  1. LAROTRECTINIB [Suspect]
     Active Substance: LAROTRECTINIB
     Indication: Leiomyosarcoma
     Dosage: 100 MG, BID
     Route: 048
     Dates: start: 20230412
  2. LAROTRECTINIB [Suspect]
     Active Substance: LAROTRECTINIB
     Indication: Leiomyosarcoma
     Dosage: UNK
     Route: 048
     Dates: end: 20230501

REACTIONS (3)
  - Cough [None]
  - Pharyngeal swelling [None]
  - Leiomyosarcoma [None]

NARRATIVE: CASE EVENT DATE: 20230420
